FAERS Safety Report 8915883 (Version 3)
Quarter: 2012Q4

REPORT INFORMATION
  Report Type: 
  Country: FI (occurrence: FI)
  Receive Date: 20121119
  Receipt Date: 20121214
  Transmission Date: 20130627
  Serious: Yes (Hospitalization, Other)
  Sender: FDA-Public Use
  Company Number: FI-PFIZER INC-2012271297

PATIENT
  Age: 42 Year
  Sex: Male
  Weight: 93 kg

DRUGS (4)
  1. ECALTA [Suspect]
     Indication: GASTRIC CANDIDIASIS
     Dosage: 200 mg, UNK
     Dates: start: 20120925
  2. ECALTA [Suspect]
     Indication: CANDIDEMIA
     Dosage: 100 mg, 1x/day
     Route: 042
     Dates: end: 20121023
  3. MEROPENEM [Concomitant]
  4. LINEZOLID [Concomitant]

REACTIONS (4)
  - Drug resistance [Not Recovered/Not Resolved]
  - Drug ineffective [Unknown]
  - Pancreatitis necrotising [Not Recovered/Not Resolved]
  - Gastrointestinal necrosis [Not Recovered/Not Resolved]
